FAERS Safety Report 9360450 (Version 4)
Quarter: 2015Q2

REPORT INFORMATION
  Report Type: Report from Study
  Country: PL (occurrence: PL)
  Receive Date: 20130621
  Receipt Date: 20150416
  Transmission Date: 20150821
  Serious: Yes (Hospitalization)
  Sender: FDA-Public Use
  Company Number: PL-JNJFOC-20130605430

PATIENT
  Age: 36 Year
  Sex: Female
  Weight: 59.8 kg

DRUGS (4)
  1. PALIPERIDONE PALMITATE [Suspect]
     Active Substance: PALIPERIDONE PALMITATE
     Indication: SCHIZOPHRENIA
     Route: 030
  2. PALIPERIDONE PALMITATE [Suspect]
     Active Substance: PALIPERIDONE PALMITATE
     Indication: SCHIZOPHRENIA
     Dosage: MEDICATION KIT NUMBER:41813
     Route: 030
     Dates: start: 20130528, end: 20130605
  3. PALIPERIDONE PALMITATE [Suspect]
     Active Substance: PALIPERIDONE PALMITATE
     Indication: SCHIZOPHRENIA
     Dosage: MEDICATION KIT NUMBER: 41238
     Route: 030
     Dates: start: 20130226
  4. HEMOFER [Concomitant]
     Indication: SERUM FERRITIN DECREASED
     Route: 048
     Dates: start: 20130510

REACTIONS (1)
  - Schizophrenia [Recovered/Resolved]

NARRATIVE: CASE EVENT DATE: 20130606
